FAERS Safety Report 23322488 (Version 1)
Quarter: 2023Q4

REPORT INFORMATION
  Report Type: Spontaneous
  Country: NL (occurrence: NL)
  Receive Date: 20231220
  Receipt Date: 20231220
  Transmission Date: 20240109
  Serious: Yes (Other)
  Sender: FDA-Public Use
  Company Number: NL-TEVA-VS-3137037

PATIENT

DRUGS (1)
  1. LISINOPRIL [Suspect]
     Active Substance: LISINOPRIL
     Route: 065

REACTIONS (4)
  - Angina pectoris [Unknown]
  - Fall [Unknown]
  - Dizziness [Unknown]
  - Heart rate increased [Unknown]
